FAERS Safety Report 24222809 (Version 6)
Quarter: 2025Q1

REPORT INFORMATION
  Report Type: Spontaneous
  Country: DE (occurrence: DE)
  Receive Date: 20240819
  Receipt Date: 20250131
  Transmission Date: 20250409
  Serious: No
  Sender: PFIZER
  Company Number: DE-PFIZER INC-202400234702

PATIENT
  Age: 40 Year
  Sex: Female
  Weight: 60 kg

DRUGS (1)
  1. MEDROXYPROGESTERONE [Suspect]
     Active Substance: MEDROXYPROGESTERONE
     Indication: Contraception
     Dosage: 104 MG/ 0.65 ML, EVERY 3 MONTHS
     Route: 058
     Dates: start: 20240812, end: 20240812

REACTIONS (2)
  - Device leakage [Unknown]
  - Device occlusion [Unknown]

NARRATIVE: CASE EVENT DATE: 20240812
